FAERS Safety Report 23910350 (Version 1)
Quarter: 2024Q2

REPORT INFORMATION
  Report Type: Spontaneous
  Country: PA (occurrence: PA)
  Receive Date: 20240528
  Receipt Date: 20240528
  Transmission Date: 20240716
  Serious: Yes (Death, Other)
  Sender: FDA-Public Use
  Company Number: PA-002147023-NVSC2024PA111539

PATIENT
  Age: 53 Year
  Sex: Female

DRUGS (1)
  1. KISQALI [Suspect]
     Active Substance: RIBOCICLIB
     Indication: Breast cancer
     Dosage: UNK
     Route: 065
     Dates: start: 2022, end: 202308

REACTIONS (10)
  - General physical health deterioration [Fatal]
  - Dyspnoea [Not Recovered/Not Resolved]
  - Haemoglobin decreased [Not Recovered/Not Resolved]
  - Laboratory test abnormal [Not Recovered/Not Resolved]
  - Dysphagia [Unknown]
  - Cough [Not Recovered/Not Resolved]
  - Decreased appetite [Not Recovered/Not Resolved]
  - Weight decreased [Not Recovered/Not Resolved]
  - Platelet count decreased [Not Recovered/Not Resolved]
  - Asthenia [Not Recovered/Not Resolved]

NARRATIVE: CASE EVENT DATE: 20230801
